FAERS Safety Report 19225380 (Version 1)
Quarter: 2021Q2

REPORT INFORMATION
  Report Type: Spontaneous
  Country: US (occurrence: US)
  Receive Date: 20210506
  Receipt Date: 20210506
  Transmission Date: 20210717
  Serious: Yes (Hospitalization, Other)
  Sender: FDA-Public Use
  Company Number: US-SUN PHARMACEUTICAL INDUSTRIES LTD-2021R1-294674

PATIENT
  Age: 23 Year
  Sex: Female

DRUGS (1)
  1. BUPROPION. [Suspect]
     Active Substance: BUPROPION
     Indication: PRODUCT USED FOR UNKNOWN INDICATION
     Dosage: 150 MILLIGRAM/ 100 TABLET
     Route: 048

REACTIONS (7)
  - Cardiomyopathy [Recovering/Resolving]
  - Electrocardiogram QRS complex prolonged [Recovering/Resolving]
  - Intentional self-injury [Unknown]
  - Hallucination [Recovering/Resolving]
  - Tachycardia [Recovering/Resolving]
  - Cardiogenic shock [Recovering/Resolving]
  - Status epilepticus [Recovering/Resolving]
